FAERS Safety Report 13370844 (Version 1)
Quarter: 2017Q1

REPORT INFORMATION
  Report Type: Report from Study
  Country: US (occurrence: US)
  Receive Date: 20170324
  Receipt Date: 20170324
  Transmission Date: 20170429
  Serious: Yes (Hospitalization)
  Sender: FDA-Public Use
  Company Number: US-BAYER-2017-026088

PATIENT
  Age: 62 Year
  Sex: Male

DRUGS (1)
  1. STIVARGA [Suspect]
     Active Substance: REGORAFENIB
     Indication: COLORECTAL CANCER
     Dosage: 160 MG, DAILY DOSE
     Route: 048
     Dates: start: 20170205, end: 20170303

REACTIONS (8)
  - Hypotension [None]
  - Cough [None]
  - Fatigue [Not Recovered/Not Resolved]
  - Decreased appetite [Not Recovered/Not Resolved]
  - Infection [None]
  - Hepatic enzyme increased [None]
  - Adverse drug reaction [None]
  - Dysphonia [None]

NARRATIVE: CASE EVENT DATE: 2017
